FAERS Safety Report 21385716 (Version 2)
Quarter: 2022Q4

REPORT INFORMATION
  Report Type: Spontaneous
  Country: US (occurrence: US)
  Receive Date: 20220928
  Receipt Date: 20221011
  Transmission Date: 20230113
  Serious: No
  Sender: FDA-Public Use
  Company Number: US-BEH-2022149859

PATIENT
  Age: 61 Year
  Sex: Female

DRUGS (12)
  1. HIZENTRA [Suspect]
     Active Substance: HUMAN IMMUNOGLOBULIN G
     Indication: Stiff person syndrome
     Dosage: 15 GRAM, TWO CONSECUTIVE DAYS, EVERY WEEK
     Route: 058
     Dates: start: 20120412
  2. LINZESS [Concomitant]
     Active Substance: LINACLOTIDE
  3. SYMBICORT [Concomitant]
     Active Substance: BUDESONIDE\FORMOTEROL FUMARATE DIHYDRATE
  4. BACITRACIN;POLYMYXIN [Concomitant]
  5. LOPRESSOR [Concomitant]
     Active Substance: METOPROLOL TARTRATE
  6. DIAZEPAM [Concomitant]
     Active Substance: DIAZEPAM
  7. LYRICA [Concomitant]
     Active Substance: PREGABALIN
  8. AMANTADINE HYDROCHLORIDE [Concomitant]
     Active Substance: AMANTADINE HYDROCHLORIDE
  9. BACLOFEN [Concomitant]
     Active Substance: BACLOFEN
  10. LORAZEPAM [Concomitant]
     Active Substance: LORAZEPAM
  11. OMEPRAZOLE [Concomitant]
     Active Substance: OMEPRAZOLE
  12. PROCHLORPERAZINE MALEATE [Concomitant]
     Active Substance: PROCHLORPERAZINE MALEATE

REACTIONS (9)
  - Fatigue [Not Recovered/Not Resolved]
  - Pain in extremity [Not Recovered/Not Resolved]
  - Peripheral swelling [Not Recovered/Not Resolved]
  - Joint swelling [Not Recovered/Not Resolved]
  - Limb discomfort [Not Recovered/Not Resolved]
  - No adverse event [Unknown]
  - Off label use [Unknown]
  - No adverse event [Recovered/Resolved]
  - Product supply issue [Recovered/Resolved]

NARRATIVE: CASE EVENT DATE: 20221003
